FAERS Safety Report 7793440-4 (Version None)
Quarter: 2011Q4

REPORT INFORMATION
  Report Type: 
  Country: None (occurrence: None)
  Receive Date: 20111003
  Receipt Date: 20110926
  Transmission Date: 20120403
  Serious: Yes (Disabling)
  Sender: FDA-Public Use
  Company Number: PHHY2011GB85083

PATIENT
  Age: 33 Year
  Sex: Male
  Weight: 112.03 kg

DRUGS (5)
  1. LANSOPRAZOLE [Concomitant]
  2. QVAR 40 [Concomitant]
  3. TRAMADOL HCL [Suspect]
     Indication: SCIATICA
     Dosage: UNK
     Route: 048
     Dates: start: 20110911, end: 20110911
  4. VENTOLIN HFA [Concomitant]
  5. SALMETEROL XINAFOATE [Concomitant]

REACTIONS (4)
  - SOMNOLENCE [None]
  - FATIGUE [None]
  - INSOMNIA [None]
  - HYPERHIDROSIS [None]
